FAERS Safety Report 7473458-1 (Version None)
Quarter: 2011Q2

REPORT INFORMATION
  Report Type: 
  Country: None (occurrence: None)
  Receive Date: 20110511
  Receipt Date: 20110502
  Transmission Date: 20111010
  Serious: Yes (Hospitalization, Other)
  Sender: FDA-Public Use
  Company Number: US-ASTRAZENECA-2011SE26419

PATIENT
  Age: 56 Year
  Sex: Male

DRUGS (3)
  1. CRESTOR [Suspect]
     Route: 048
  2. FISH OIL [Concomitant]
  3. NEXIUM [Suspect]
     Route: 048

REACTIONS (11)
  - PERIPHERAL ARTERIAL OCCLUSIVE DISEASE [None]
  - CORONARY ARTERY DISEASE [None]
  - HIATUS HERNIA [None]
  - CORONARY ARTERY BYPASS [None]
  - VASCULAR GRAFT [None]
  - STENT PLACEMENT [None]
  - CARDIAC FAILURE CONGESTIVE [None]
  - MYOCARDIAL INFARCTION [None]
  - CHRONIC OBSTRUCTIVE PULMONARY DISEASE [None]
  - BLOOD CHOLESTEROL INCREASED [None]
  - CARDIAC OPERATION [None]
